FAERS Safety Report 10415315 (Version 1)
Quarter: 2014Q2

REPORT INFORMATION
  Report Type: Spontaneous
  Country: US (occurrence: None)
  Receive Date: 20140604
  Receipt Date: 20140604
  Transmission Date: 20141212
  Serious: Yes (Hospitalization)
  Sender: FDA-Public Use
  Company Number: 20120312CINRY2735

PATIENT
  Sex: Female

DRUGS (3)
  1. CINRYZE (C1 ESTERASE INHIBITOR (HUMAN)) (500 UNIT, INJECTION FOR INFUSION) (C1 ESTERASE INHIBITOR (HUMAN)) [Suspect]
     Indication: PROPHYLAXIS
     Dosage: 1000 UNIT, EVERY 3 TO 4 DAYS), INTRAVENOUS
     Route: 042
     Dates: start: 2009
  2. CINRYZE (C1 ESTERASE INHIBITOR (HUMAN)) (500 UNIT, INJECTION FOR INFUSION) (C1 ESTERASE INHIBITOR (HUMAN)) [Suspect]
     Indication: HEREDITARY ANGIOEDEMA
     Dosage: 1000 UNIT, EVERY 3 TO 4 DAYS), INTRAVENOUS
     Route: 042
     Dates: start: 2009
  3. KALBITOR (UNKNOWN) [Concomitant]

REACTIONS (6)
  - Hereditary angioedema [None]
  - Therapy change [None]
  - Extra dose administered [None]
  - Drug effect decreased [None]
  - Hypersensitivity [None]
  - Angioedema [None]
